FAERS Safety Report 9617642 (Version 1)
Quarter: 2013Q4

REPORT INFORMATION
  Report Type: Spontaneous
  Country: GB (occurrence: GB)
  Receive Date: 20131011
  Receipt Date: 20131011
  Transmission Date: 20140711
  Serious: Yes (Hospitalization)
  Sender: FDA-Public Use
  Company Number: GB-ACTAVIS-2013-18310

PATIENT
  Age: 73 Year
  Sex: Male

DRUGS (6)
  1. GEMCITABINE (UNKNOWN) [Suspect]
     Indication: PANCREATIC CARCINOMA
     Dosage: 1000 MG/M2, UNKNOWN; CYCLICAL
     Route: 042
     Dates: start: 20130218, end: 20130722
  2. CO-AMOXICLAV                       /00756801/ [Concomitant]
     Indication: PRODUCT USED FOR UNKNOWN INDICATION
     Dosage: 625 MG, TID
     Route: 048
  3. OMEPRAZOLE [Concomitant]
     Indication: DYSPEPSIA
     Dosage: 40 MG, BID
     Route: 048
  4. COSOPT [Concomitant]
     Indication: GLAUCOMA
     Dosage: TWICE DAILY; DROPS
     Route: 047
  5. SYNALAR [Concomitant]
     Indication: PRODUCT USED FOR UNKNOWN INDICATION
     Dosage: ONCE DAILY
     Route: 061
  6. BETNOVATE [Concomitant]
     Indication: ECZEMA
     Dosage: 0.1 % TID
     Route: 061

REACTIONS (1)
  - Biliary sepsis [Recovered/Resolved]
